FAERS Safety Report 20297939 (Version 1)
Quarter: 2022Q1

REPORT INFORMATION
  Report Type: Report from Study
  Country: IL (occurrence: IL)
  Receive Date: 20220105
  Receipt Date: 20220105
  Transmission Date: 20220423
  Serious: Yes (Other)
  Sender: FDA-Public Use
  Company Number: IL-JNJFOC-20211265702

PATIENT

DRUGS (3)
  1. DARZALEX [Suspect]
     Active Substance: DARATUMUMAB
     Indication: Plasma cell myeloma
     Dosage: ON DAYS 1, 8, 15, AND 22; ALL CYCLES WERE?28 DAYS
     Route: 042
  2. DARZALEX [Suspect]
     Active Substance: DARATUMUMAB
     Dosage: CYCLES 3 TO 6 [ON DAYS 1AND 15]
     Route: 042
  3. CETRELIMAB [Suspect]
     Active Substance: CETRELIMAB
     Indication: Plasma cell myeloma
     Dosage: ON DAY 2 AND DAY 15 OF CYCLE 1, AND THEN ON DAY 1 AND DAY 15 OF ALL CYCLES THEREAFTER.
     Route: 042

REACTIONS (16)
  - Septic shock [Unknown]
  - Neutropenia [Unknown]
  - Thrombocytopenia [Unknown]
  - Leukopenia [Unknown]
  - Lymphopenia [Unknown]
  - Anaemia [Unknown]
  - Infusion related reaction [Unknown]
  - Febrile neutropenia [Unknown]
  - Myalgia [Unknown]
  - Fatigue [Unknown]
  - Nausea [Unknown]
  - Vomiting [Unknown]
  - Asthenia [Unknown]
  - Diarrhoea [Unknown]
  - Hypertension [Unknown]
  - Paraesthesia [Unknown]
